FAERS Safety Report 7494773-1 (Version None)
Quarter: 2011Q2

REPORT INFORMATION
  Report Type: 
  Country: None (occurrence: None)
  Receive Date: 20110520
  Receipt Date: 20110511
  Transmission Date: 20111010
  Serious: Yes (Hospitalization)
  Sender: FDA-Public Use
  Company Number: A0787479A

PATIENT
  Age: 55 Year
  Sex: Male
  Weight: 75.5 kg

DRUGS (6)
  1. CRESTOR [Concomitant]
  2. METOPROLOL SUCCINATE [Concomitant]
  3. PRILOSEC [Concomitant]
  4. AVANDIA [Suspect]
     Indication: DIABETES MELLITUS
     Dosage: 4MG TWICE PER DAY
     Route: 048
     Dates: start: 20020301, end: 20070503
  5. METFORMIN HCL [Concomitant]
  6. LISINOPRIL [Concomitant]

REACTIONS (4)
  - CORONARY ARTERY DISEASE [None]
  - MYOCARDIAL ISCHAEMIA [None]
  - ISCHAEMIC CARDIOMYOPATHY [None]
  - MYOCARDIAL INFARCTION [None]
